FAERS Safety Report 9037729 (Version 1)
Quarter: 2013Q1

REPORT INFORMATION
  Report Type: Report from Study
  Country: US (occurrence: US)
  Receive Date: 20130129
  Receipt Date: 20130129
  Transmission Date: 20140127
  Serious: No
  Sender: FDA-Public Use
  Company Number: US-ABBOTT-12P-163-0900136-00

PATIENT
  Age: 63 None
  Sex: Female
  Weight: 95.34 kg

DRUGS (10)
  1. HUMIRA 40 MG/0.8 ML PEN [Suspect]
     Indication: PSORIASIS
     Dates: start: 2009, end: 201102
  2. HUMIRA 40 MG/0.8 ML PEN [Suspect]
     Dates: start: 201109
  3. ACTOSE [Concomitant]
     Indication: DIABETES MELLITUS
  4. ZETIA [Concomitant]
     Indication: BLOOD CHOLESTEROL INCREASED
  5. PROPRANOLOL [Concomitant]
     Indication: ANXIETY
  6. LIPITOR [Concomitant]
     Indication: BLOOD CHOLESTEROL INCREASED
  7. FENOFIBRATE [Concomitant]
     Indication: BLOOD CHOLESTEROL INCREASED
  8. BUSPIRONE [Concomitant]
     Indication: ANXIETY
  9. MENEST [Concomitant]
     Indication: HORMONE REPLACEMENT THERAPY
  10. METFORMIN [Concomitant]
     Indication: DIABETES MELLITUS

REACTIONS (7)
  - Erythrodermic psoriasis [Recovered/Resolved]
  - Psoriasis [Recovering/Resolving]
  - Psoriasis [Recovering/Resolving]
  - Respiratory tract congestion [Recovering/Resolving]
  - Cough [Recovering/Resolving]
  - Bronchitis [Recovering/Resolving]
  - Sinus congestion [Recovering/Resolving]
